FAERS Safety Report 23561254 (Version 1)
Quarter: 2024Q1

REPORT INFORMATION
  Report Type: Spontaneous
  Country: IN (occurrence: IN)
  Receive Date: 20240224
  Receipt Date: 20240224
  Transmission Date: 20240409
  Serious: Yes (Hospitalization, Other)
  Sender: FDA-Public Use
  Company Number: IN-MLMSERVICE-20240130-4802318-1

PATIENT
  Age: 36 Year
  Sex: Male

DRUGS (4)
  1. CLONAZEPAM [Suspect]
     Active Substance: CLONAZEPAM
     Indication: Bipolar disorder
  2. VALPROATE SODIUM [Suspect]
     Active Substance: VALPROATE SODIUM
     Indication: Bipolar disorder
  3. QUETIAPINE [Concomitant]
     Active Substance: QUETIAPINE
     Indication: Bipolar disorder
  4. QUETIAPINE [Concomitant]
     Active Substance: QUETIAPINE
     Indication: Bipolar disorder

REACTIONS (6)
  - Cerebellar atrophy [Unknown]
  - Hyponatraemia [Unknown]
  - Drug withdrawal convulsions [Recovering/Resolving]
  - Generalised tonic-clonic seizure [Recovered/Resolved]
  - Hyperammonaemia [Recovering/Resolving]
  - Catatonia [Recovering/Resolving]
